FAERS Safety Report 9637134 (Version 2)
Quarter: 2013Q4

REPORT INFORMATION
  Report Type: Spontaneous
  Country: GB (occurrence: GB)
  Receive Date: 20131022
  Receipt Date: 20131104
  Transmission Date: 20140711
  Serious: Yes (Other)
  Sender: FDA-Public Use
  Company Number: GB-BAYER-2013-125973

PATIENT
  Age: 47 Year
  Sex: Female

DRUGS (2)
  1. MIRENA [Suspect]
     Indication: MENORRHAGIA
     Dosage: 20 MCG/24HR, CONT
     Route: 015
     Dates: start: 2007
  2. MIRENA [Suspect]
     Indication: CONTRACEPTION

REACTIONS (10)
  - Allergy to chemicals [None]
  - Device breakage [Not Recovered/Not Resolved]
  - Complication of device removal [None]
  - Device misuse [Not Recovered/Not Resolved]
  - Malaise [Not Recovered/Not Resolved]
  - Myalgia [Not Recovered/Not Resolved]
  - Influenza [Not Recovered/Not Resolved]
  - Uterine leiomyoma [None]
  - Fibromyalgia [None]
  - Myofascial pain syndrome [Not Recovered/Not Resolved]
